FAERS Safety Report 5034084-7 (Version None)
Quarter: 2006Q2

REPORT INFORMATION
  Report Type: 
  Country: None (occurrence: None)
  Receive Date: 20060621
  Receipt Date: 20060613
  Transmission Date: 20061013
  Serious: Yes (Hospitalization)
  Sender: FDA-Public Use
  Company Number: HQWYE232915JUN06

PATIENT
  Age: 72 Year
  Sex: Female
  Weight: 60 kg

DRUGS (15)
  1. TYGACIL [Suspect]
     Indication: ACINETOBACTER INFECTION
     Dosage: 100 MG LOADING DOSE, THEN 50 MG EVERY 12 HOURS, INTRAVENOUS
     Route: 042
     Dates: start: 20060607, end: 20060610
  2. TYGACIL [Suspect]
     Indication: BACTERIA SPUTUM IDENTIFIED
     Dosage: 100 MG LOADING DOSE, THEN 50 MG EVERY 12 HOURS, INTRAVENOUS
     Route: 042
     Dates: start: 20060607, end: 20060610
  3. TYGACIL [Suspect]
     Indication: BACTERIA URINE IDENTIFIED
     Dosage: 100 MG LOADING DOSE, THEN 50 MG EVERY 12 HOURS, INTRAVENOUS
     Route: 042
     Dates: start: 20060607, end: 20060610
  4. BACTRIM [Suspect]
     Dosage: 145 MG 1X PER 1 DAY, INTRAVENOUS
     Route: 042
     Dates: start: 20060606, end: 20060606
  5. LASIX [Suspect]
     Dates: start: 20060603
  6. ACETYLCYSTEINE [Concomitant]
  7. ALBUTEROL [Concomitant]
  8. MEGESTROL ACETATE [Concomitant]
  9. METHYLPREDNISOLONE [Concomitant]
  10. METOCLOPRAMIDE [Concomitant]
  11. MULTIVITAMINS, PLAIN (MULTIVITAMINS, PLAIN) [Concomitant]
  12. NYSTATIN [Concomitant]
  13. ARTIFICIAL TEARS (ARTIFICIAL TEARS) [Concomitant]
  14. THEOPHYLLINE [Concomitant]
  15. PRIMAXIN [Concomitant]

REACTIONS (2)
  - DERMATITIS ALLERGIC [None]
  - STEVENS-JOHNSON SYNDROME [None]
